FAERS Safety Report 11916762 (Version 2)
Quarter: 2016Q1

REPORT INFORMATION
  Report Type: Spontaneous
  Country: BG (occurrence: BG)
  Receive Date: 20160114
  Receipt Date: 20160125
  Transmission Date: 20160526
  Serious: Yes (Hospitalization)
  Sender: FDA-Public Use
  Company Number: BG-PFIZER INC-2016016143

PATIENT
  Age: 26 Year
  Sex: Female

DRUGS (1)
  1. DOSTINEX [Suspect]
     Active Substance: CABERGOLINE
     Indication: LACTATION INHIBITION THERAPY
     Dosage: 0.25 MG, 2X/DAY
     Route: 048
     Dates: start: 20151227, end: 20151229

REACTIONS (8)
  - Erythema [Recovered/Resolved]
  - Fatigue [Recovered/Resolved]
  - Pain in extremity [Recovered/Resolved]
  - Somnolence [Recovered/Resolved]
  - Pain [Recovered/Resolved]
  - Oedema peripheral [Recovered/Resolved]
  - Peripheral swelling [Recovered/Resolved]
  - Gait disturbance [Recovered/Resolved]

NARRATIVE: CASE EVENT DATE: 20151228
